FAERS Safety Report 10162497 (Version 2)
Quarter: 2014Q3

REPORT INFORMATION
  Report Type: Report from Study
  Country: BE (occurrence: BE)
  Receive Date: 20140509
  Receipt Date: 20140904
  Transmission Date: 20150326
  Serious: Yes (Hospitalization, Other)
  Sender: FDA-Public Use
  Company Number: BE-US-EMD SERONO, INC.-7289327

PATIENT
  Sex: Female

DRUGS (3)
  1. REBIF [Suspect]
     Active Substance: INTERFERON BETA-1A
     Indication: MULTIPLE SCLEROSIS
     Dates: start: 20100921
  2. METHOTREXATE [Concomitant]
     Active Substance: METHOTREXATE
     Indication: CROHN^S DISEASE
     Route: 030
     Dates: start: 201404
  3. REBIF [Suspect]
     Active Substance: INTERFERON BETA-1A

REACTIONS (8)
  - Diarrhoea [Unknown]
  - Injection site induration [Unknown]
  - Influenza like illness [Unknown]
  - Crohn^s disease [Unknown]
  - Injection site bruising [Unknown]
  - Injection site erythema [Unknown]
  - Abdominal pain upper [Unknown]
  - Toothache [Unknown]
